FAERS Safety Report 5924826-8 (Version None)
Quarter: 2008Q4

REPORT INFORMATION
  Report Type: 
  Country: None (occurrence: None)
  Receive Date: 20081020
  Receipt Date: 20081020
  Transmission Date: 20090506
  Serious: Yes (Hospitalization)
  Sender: FDA-Public Use
  Company Number: None

PATIENT
  Sex: Male
  Weight: 93.18 kg

DRUGS (2)
  1. PACLITAXEL [Suspect]
     Indication: OESOPHAGEAL CARCINOMA
     Dosage: 107 MG IV WEEKLY X 6 IV
     Route: 042
     Dates: start: 20080922, end: 20081008
  2. CISPLATIN [Suspect]
     Indication: OESOPHAGEAL CARCINOMA
     Dosage: 53 MG IV WEEKLY X 6 IV
     Route: 042
     Dates: start: 20080922, end: 20081008

REACTIONS (5)
  - DEHYDRATION [None]
  - DIZZINESS [None]
  - DYSPHAGIA [None]
  - PROCEDURAL COMPLICATION [None]
  - STENT OCCLUSION [None]
